FAERS Safety Report 23364578 (Version 2)
Quarter: 2024Q2

REPORT INFORMATION
  Report Type: Spontaneous
  Country: US (occurrence: US)
  Receive Date: 20240104
  Receipt Date: 20240607
  Transmission Date: 20240715
  Serious: Yes (Other)
  Sender: FDA-Public Use
  Company Number: US-KYOWAKIRIN-2023KK019900

PATIENT
  Age: 47 Year
  Sex: Male

DRUGS (1)
  1. TESTOSTERONE [Suspect]
     Active Substance: TESTOSTERONE
     Indication: Secondary hypogonadism
     Dosage: UNK
     Route: 065

REACTIONS (2)
  - Factor VIII activity increased [Unknown]
  - Osteonecrosis [Recovering/Resolving]
